FAERS Safety Report 9064812 (Version 2)
Quarter: 2013Q1

REPORT INFORMATION
  Report Type: Spontaneous
  Country: FR (occurrence: FR)
  Receive Date: 20130130
  Receipt Date: 20130308
  Transmission Date: 20140127
  Serious: Yes (Other)
  Sender: FDA-Public Use
  Company Number: FR-AMGEN-FRASP2013006312

PATIENT
  Age: 42 Year
  Sex: Female

DRUGS (2)
  1. ENBREL [Suspect]
     Indication: RHEUMATOID ARTHRITIS
     Dosage: 1 DF, WEEKLY
     Route: 058
     Dates: start: 20110909
  2. IMETH [Concomitant]
     Dosage: 15 MG, UNK
     Route: 048
     Dates: start: 20110630

REACTIONS (2)
  - Photosensitivity reaction [Recovered/Resolved]
  - Cutaneous lupus erythematosus [Recovered/Resolved]
